FAERS Safety Report 9112482 (Version 1)
Quarter: 2013Q1

REPORT INFORMATION
  Report Type: Spontaneous
  Country: US (occurrence: US)
  Receive Date: 20130212
  Receipt Date: 20130212
  Transmission Date: 20140127
  Serious: Yes (Other)
  Sender: FDA-Public Use
  Company Number: US-AMGEN-USASP2013008746

PATIENT
  Age: 63 Year
  Sex: Male
  Weight: 78.01 kg

DRUGS (2)
  1. PROCRIT [Suspect]
     Indication: ANAEMIA
     Dosage: 20,000 IU AND 40,000 IU
     Route: 058
     Dates: start: 20120612
  2. BLOOD TRANSFUSION, AUXILIARY PRODUCTS [Concomitant]
     Indication: ANAEMIA
     Dosage: 2 UNITS OF PRBC
     Dates: start: 20120725

REACTIONS (2)
  - Hepatitis C [Unknown]
  - Incorrect storage of drug [Unknown]
